FAERS Safety Report 7041876-1 (Version None)
Quarter: 2010Q4

REPORT INFORMATION
  Report Type: 
  Country: None (occurrence: None)
  Receive Date: 20101013
  Receipt Date: 20100319
  Transmission Date: 20110411
  Serious: No
  Sender: FDA-Public Use
  Company Number: US-ASTRAZENECA-2010SE10731

PATIENT
  Age: 82 Year
  Sex: Female
  Weight: 57.6 kg

DRUGS (2)
  1. SYMBICORT [Suspect]
     Indication: ASTHMA
     Dosage: 320 UG TWO TIMES A DAY
     Route: 055
     Dates: start: 20100217
  2. SYMBICORT [Suspect]
     Indication: CHRONIC OBSTRUCTIVE PULMONARY DISEASE
     Dosage: 320 UG TWO TIMES A DAY
     Route: 055
     Dates: start: 20100217

REACTIONS (5)
  - COUGH [None]
  - HEPATIC ENZYME INCREASED [None]
  - PYREXIA [None]
  - THROAT IRRITATION [None]
  - UPPER-AIRWAY COUGH SYNDROME [None]
